FAERS Safety Report 5576065-0 (Version None)
Quarter: 2007Q4

REPORT INFORMATION
  Report Type: 
  Country: None (occurrence: None)
  Receive Date: 20071228
  Receipt Date: 20071218
  Transmission Date: 20080405
  Serious: Yes (Hospitalization, Other)
  Sender: FDA-Public Use
  Company Number: JP-JNJFOC-20071106677

PATIENT
  Age: 44 Year
  Sex: Male

DRUGS (8)
  1. PREZISTA [Suspect]
     Indication: HIV INFECTION
     Route: 048
  2. MK-0518 [Suspect]
     Indication: HIV INFECTION
     Route: 048
  3. ZERIT [Suspect]
     Indication: HIV INFECTION
     Route: 048
  4. NORVIR [Suspect]
     Indication: HIV INFECTION
     Route: 048
  5. MEPRON [Concomitant]
     Route: 065
  6. KLARICID [Concomitant]
     Route: 065
  7. GASTER [Concomitant]
     Route: 065
  8. VALGANCICLOVIR HCL [Concomitant]
     Route: 065

REACTIONS (1)
  - IMMUNE RECONSTITUTION SYNDROME [None]
